FAERS Safety Report 8938432 (Version 1)
Quarter: 2012Q4

REPORT INFORMATION
  Report Type: Spontaneous
  Country: US (occurrence: None)
  Receive Date: 20121129
  Receipt Date: 20121129
  Transmission Date: 20130627
  Serious: No
  Sender: FDA-Public Use
  Company Number: None

PATIENT

DRUGS (1)
  1. VIGAMOX [Suspect]
     Indication: CATARACT OPERATION
     Dates: start: 20121106, end: 20121111

REACTIONS (2)
  - Eye pain [None]
  - Product commingling [None]
